FAERS Safety Report 4347464-X (Version None)
Quarter: 2004Q2

REPORT INFORMATION
  Report Type: 
  Country: None (occurrence: None)
  Receive Date: 20040421
  Receipt Date: 20040113
  Transmission Date: 20050107
  Serious: Yes (Other)
  Sender: FDA-Public Use
  Company Number: 2004002708

PATIENT
  Sex: Male

DRUGS (1)
  1. RELPAX [Suspect]
     Indication: PAIN

REACTIONS (5)
  - AFFECT LABILITY [None]
  - BLOOD PRESSURE INCREASED [None]
  - FEAR [None]
  - NAUSEA [None]
  - PAIN [None]
